FAERS Safety Report 22993675 (Version 2)
Quarter: 2023Q4

REPORT INFORMATION
  Report Type: Spontaneous
  Country: JP (occurrence: JP)
  Receive Date: 20230927
  Receipt Date: 20231005
  Transmission Date: 20240110
  Serious: Yes (Hospitalization, Other)
  Sender: FDA-Public Use
  Company Number: JP-BRISTOL-MYERS SQUIBB COMPANY-2023-134652

PATIENT
  Age: 65 Year
  Sex: Male

DRUGS (1)
  1. REVLIMID [Suspect]
     Active Substance: LENALIDOMIDE
     Indication: Plasma cell myeloma
     Dosage: FROM NOVEMBER OF YEAR X

REACTIONS (7)
  - Neutrophil count decreased [Recovering/Resolving]
  - Pancytopenia [Recovered/Resolved]
  - Diarrhoea [Unknown]
  - Hepatic function abnormal [Recovering/Resolving]
  - Aplastic anaemia [Recovered/Resolved]
  - Suspected drug-induced liver injury [Recovering/Resolving]
  - Jaundice [Recovering/Resolving]
